FAERS Safety Report 16358997 (Version 1)
Quarter: 2019Q2

REPORT INFORMATION
  Report Type: Spontaneous
  Country: US (occurrence: US)
  Receive Date: 20190527
  Receipt Date: 20190527
  Transmission Date: 20190711
  Serious: No
  Sender: FDA-Public Use
  Company Number: US-SA-2019SA137392

PATIENT
  Age: 53 Year
  Sex: Female

DRUGS (2)
  1. BUDESONIDE/FORMOTEROL FUMARATE [Suspect]
     Active Substance: BUDESONIDE\FORMOTEROL FUMARATE
     Dosage: UNK UNK, BID (TWO PUFFS TWICE ADAY)
     Route: 065
  2. NASACORT ALLERGY 24HR [Suspect]
     Active Substance: TRIAMCINOLONE ACETONIDE
     Dosage: 2 SPRAY EACH NOSTRIL
     Route: 065

REACTIONS (2)
  - Pruritus [Unknown]
  - Herpes zoster [Unknown]
